FAERS Safety Report 8890626 (Version 1)
Quarter: 2012Q4

REPORT INFORMATION
  Report Type: 
  Country: CN (occurrence: CN)
  Receive Date: 20121107
  Receipt Date: 20121107
  Transmission Date: 20130627
  Serious: Yes (Hospitalization)
  Sender: FDA-Public Use
  Company Number: CN-BAYER-2012-115118

PATIENT
  Age: 79 Year
  Sex: Male
  Weight: 72 kg

DRUGS (1)
  1. ACETYLSALICYLIC ACID({=100 MG) [Suspect]
     Indication: COAGULATION DEFECTS, OTHER AND UNSPECIFIED
     Dosage: 100 mg, QD
     Route: 048
     Dates: start: 20110428, end: 20110512

REACTIONS (1)
  - Thrombocytopenic purpura [Recovered/Resolved with Sequelae]
